FAERS Safety Report 24734357 (Version 1)
Quarter: 2024Q4

REPORT INFORMATION
  Report Type: Spontaneous
  Country: CN (occurrence: CN)
  Receive Date: 20241214
  Receipt Date: 20241214
  Transmission Date: 20250115
  Serious: No
  Sender: ALKEM
  Company Number: CN-ALKEM LABORATORIES LIMITED-CN-ALKEM-2024-18897

PATIENT
  Age: 35 Year
  Sex: Female

DRUGS (11)
  1. MYCOPHENOLATE MOFETIL [Suspect]
     Active Substance: MYCOPHENOLATE MOFETIL
     Indication: Interstitial lung disease
     Dosage: 0.75 GRAM, BID
     Route: 065
  2. MYCOPHENOLATE MOFETIL [Suspect]
     Active Substance: MYCOPHENOLATE MOFETIL
     Indication: Pericarditis
     Dosage: 0.5 GRAM, BID
     Route: 065
  3. MYCOPHENOLATE MOFETIL [Suspect]
     Active Substance: MYCOPHENOLATE MOFETIL
     Indication: Pericardial fibrosis
  4. METHYLPREDNISOLONE [Concomitant]
     Active Substance: METHYLPREDNISOLONE
     Indication: Interstitial lung disease
     Dosage: 40 MILLIGRAM, QD
     Route: 042
  5. METHYLPREDNISOLONE [Concomitant]
     Active Substance: METHYLPREDNISOLONE
     Indication: Pericarditis
     Dosage: 6 MILLIGRAM, QD
     Route: 042
  6. METHYLPREDNISOLONE [Concomitant]
     Active Substance: METHYLPREDNISOLONE
     Indication: Pericardial fibrosis
     Dosage: 16 MILLIGRAM, QD
     Route: 042
  7. METHYLPREDNISOLONE [Concomitant]
     Active Substance: METHYLPREDNISOLONE
     Dosage: 8 MILLIGRAM, QD
     Route: 042
  8. METHYLPREDNISOLONE [Concomitant]
     Active Substance: METHYLPREDNISOLONE
     Dosage: 16 MILLIGRAM, QD
     Route: 042
  9. METHYLPREDNISOLONE [Concomitant]
     Active Substance: METHYLPREDNISOLONE
     Dosage: 24 MILLIGRAM, QD
     Route: 042
  10. METHYLPREDNISOLONE [Concomitant]
     Active Substance: METHYLPREDNISOLONE
     Dosage: 8 MILLIGRAM, QD
     Route: 042
  11. HYDROXYCHLOROQUINE [Concomitant]
     Active Substance: HYDROXYCHLOROQUINE
     Indication: Systemic lupus erythematosus
     Dosage: 200 MILLIGRAM, BID
     Route: 065

REACTIONS (2)
  - White blood cell count decreased [Unknown]
  - Neutrophil count decreased [Unknown]
